FAERS Safety Report 6233926-7 (Version None)
Quarter: 2009Q2

REPORT INFORMATION
  Report Type: 
  Country: None (occurrence: None)
  Receive Date: 20090618
  Receipt Date: 20090604
  Transmission Date: 20091009
  Serious: Yes (Other)
  Sender: FDA-Public Use
  Company Number: US-RANBAXY-2009RR-24754

PATIENT
  Age: 68 Year
  Sex: Male

DRUGS (2)
  1. NORTRIPTYLINE HCL [Suspect]
     Dosage: UNK
  2. MIDAZOLAM HCL [Concomitant]
     Indication: INDUCTION OF ANAESTHESIA

REACTIONS (2)
  - ANAESTHETIC COMPLICATION VASCULAR [None]
  - HYPOTENSION [None]
